FAERS Safety Report 4560729-1 (Version None)
Quarter: 2005Q1

REPORT INFORMATION
  Report Type: 
  Country: None (occurrence: None)
  Receive Date: 20050121
  Receipt Date: 20050111
  Transmission Date: 20050727
  Serious: Yes (Other)
  Sender: FDA-Public Use
  Company Number: 2005-01-0969

PATIENT
  Age: 60 Year

DRUGS (3)
  1. CLARITIN [Suspect]
     Dosage: 10 MG ORAL
     Route: 048
     Dates: start: 20041104, end: 20050111
  2. ALLOPURINOL [Suspect]
  3. FUROSEMIDE [Suspect]

REACTIONS (2)
  - HAEMORRHAGE [None]
  - PLATELET COUNT DECREASED [None]
